FAERS Safety Report 19878646 (Version 1)
Quarter: 2021Q3

REPORT INFORMATION
  Report Type: Report from Study
  Country: GB (occurrence: GB)
  Receive Date: 20210924
  Receipt Date: 20210924
  Transmission Date: 20211014
  Serious: Yes (Hospitalization, Other)
  Sender: FDA-Public Use
  Company Number: GB-TEVA-2021-GB-1954987

PATIENT
  Age: 73 Year
  Sex: Male

DRUGS (4)
  1. OLMESARTAN MEDOXOMIL. [Concomitant]
     Active Substance: OLMESARTAN MEDOXOMIL
     Dosage: 10 MILLIGRAM DAILY;
     Route: 065
  2. MORPHINE [Suspect]
     Active Substance: MORPHINE
     Indication: PRODUCT USED FOR UNKNOWN INDICATION
     Dosage: UNK
     Route: 065
  3. SANDOSTATIN LAR DEPOT [Suspect]
     Active Substance: OCTREOTIDE ACETATE
     Indication: NEUROENDOCRINE TUMOUR
     Dosage: READYFILL SYRINGE, VIAL ADAPTOR , MONOJECT SAFETY NEEDLE ; 30 MG, QMO (EVERY 4 WEEKS) ,
     Route: 030
     Dates: start: 20181005
  4. OLMESARTAN MEDOXOMIL. [Concomitant]
     Active Substance: OLMESARTAN MEDOXOMIL
     Indication: PRODUCT USED FOR UNKNOWN INDICATION
     Dosage: 20 MILLIGRAM DAILY;
     Route: 065

REACTIONS (28)
  - Skin exfoliation [Unknown]
  - Embolism [Unknown]
  - Pneumothorax [Unknown]
  - C-reactive protein increased [Unknown]
  - Liver function test abnormal [Recovering/Resolving]
  - Malaise [Unknown]
  - Dizziness [Unknown]
  - Tricuspid valve incompetence [Unknown]
  - Blood pressure increased [Unknown]
  - Flatulence [Unknown]
  - Diarrhoea [Unknown]
  - Skin discolouration [Unknown]
  - Liver function test increased [Recovering/Resolving]
  - Skin mass [Unknown]
  - Delayed recovery from anaesthesia [Unknown]
  - Steatorrhoea [Unknown]
  - Weight decreased [Unknown]
  - Pruritus [Unknown]
  - Gait disturbance [Unknown]
  - Lower respiratory tract infection [Unknown]
  - Confusion postoperative [Recovered/Resolved]
  - Lethargy [Unknown]
  - Asthenia [Unknown]
  - Nausea [Unknown]
  - Syncope [Unknown]
  - Rash [Unknown]
  - Joint swelling [Unknown]
  - Tooth infection [Unknown]

NARRATIVE: CASE EVENT DATE: 20190215
